FAERS Safety Report 11457202 (Version 1)
Quarter: 2015Q3

REPORT INFORMATION
  Report Type: Spontaneous
  Country: US (occurrence: US)
  Receive Date: 20150904
  Receipt Date: 20150904
  Transmission Date: 20151125
  Serious: Yes (Hospitalization)
  Sender: FDA-Public Use
  Company Number: US-BEH-2015053515

PATIENT
  Sex: Female
  Weight: 132 kg

DRUGS (23)
  1. METFORMIN [Concomitant]
     Active Substance: METFORMIN HYDROCHLORIDE
  2. CARVEDILOL. [Concomitant]
     Active Substance: CARVEDILOL
  3. LYRICA [Concomitant]
     Active Substance: PREGABALIN
  4. ATIVAN [Concomitant]
     Active Substance: LORAZEPAM
  5. ACETAMINOPHEN. [Concomitant]
     Active Substance: ACETAMINOPHEN
  6. DIPHENHYDRAMINE. [Concomitant]
     Active Substance: DIPHENHYDRAMINE
  7. PULMICORT TURBUHALER [Concomitant]
     Active Substance: BUDESONIDE
  8. LANTUS [Concomitant]
     Active Substance: INSULIN GLARGINE
  9. CYCLOBENZAPRINE [Concomitant]
     Active Substance: CYCLOBENZAPRINE
  10. GABAPENTIN. [Concomitant]
     Active Substance: GABAPENTIN
  11. TRAMADOL. [Concomitant]
     Active Substance: TRAMADOL
  12. LIDOCAINE. [Concomitant]
     Active Substance: LIDOCAINE
  13. MONTELUKAST [Concomitant]
     Active Substance: MONTELUKAST SODIUM
  14. SUCRALFATE. [Concomitant]
     Active Substance: SUCRALFATE
  15. HIZENTRA [Suspect]
     Active Substance: HUMAN IMMUNOGLOBULIN G
     Indication: IMMUNODEFICIENCY COMMON VARIABLE
     Dosage: 10 GM 50 ML VIAL
     Route: 058
  16. EPIPEN [Concomitant]
     Active Substance: EPINEPHRINE
     Indication: ANAPHYLACTIC REACTION
  17. ALBUTEROL. [Concomitant]
     Active Substance: ALBUTEROL
  18. SPIRIVA [Concomitant]
     Active Substance: TIOTROPIUM BROMIDE MONOHYDRATE
  19. ZOLPIDEM [Concomitant]
     Active Substance: ZOLPIDEM\ZOLPIDEM TARTRATE
  20. CLONAZEPAM. [Concomitant]
     Active Substance: CLONAZEPAM
  21. FUROSEMIDE. [Concomitant]
     Active Substance: FUROSEMIDE
  22. LISINOPRIL. [Concomitant]
     Active Substance: LISINOPRIL
  23. ESCITALOPRAM [Concomitant]
     Active Substance: ESCITALOPRAM OXALATE

REACTIONS (3)
  - Nasopharyngitis [Unknown]
  - Thrombosis [Unknown]
  - Bronchitis [Unknown]
